FAERS Safety Report 15424277 (Version 1)
Quarter: 2018Q3

REPORT INFORMATION
  Report Type: Spontaneous
  Country: US (occurrence: US)
  Receive Date: 20180918
  Receipt Date: 20180918
  Transmission Date: 20181010
  Serious: No
  Sender: FDA-Public Use
  Company Number: None

PATIENT
  Age: 49 Year
  Sex: Female

DRUGS (3)
  1. COSENTYX [Suspect]
     Active Substance: SECUKINUMAB
     Dates: start: 201801
  2. SPIRONOLACTONE. [Concomitant]
     Active Substance: SPIRONOLACTONE
  3. SUCRALFATE. [Concomitant]
     Active Substance: SUCRALFATE

REACTIONS (2)
  - Product storage error [None]
  - Product distribution issue [None]

NARRATIVE: CASE EVENT DATE: 20180911
